FAERS Safety Report 8158683-9 (Version None)
Quarter: 2012Q1

REPORT INFORMATION
  Report Type: 
  Country: None (occurrence: None)
  Receive Date: 20120217
  Receipt Date: 20120210
  Transmission Date: 20120608
  Serious: Yes (Life-Threatening, Hospitalization)
  Sender: FDA-Public Use
  Company Number: 2012SP007631

PATIENT
  Age: 48 Year
  Sex: Male

DRUGS (9)
  1. MIRTAZAPINE [Suspect]
     Indication: PRODUCT USED FOR UNKNOWN INDICATION
     Dosage: 15 MG;BID;PO; 15 MG;QD; PO
     Route: 048
     Dates: start: 20110607
  2. RISPERDAL [Suspect]
     Indication: PRODUCT USED FOR UNKNOWN INDICATION
     Dosage: 2 MG;QPM;PO;2 MG;QD;PO; 4 MG;QD;PO
     Route: 048
     Dates: start: 20110401
  3. RISPERDAL [Suspect]
     Indication: PRODUCT USED FOR UNKNOWN INDICATION
     Dosage: 2 MG;QPM;PO;2 MG;QD;PO; 4 MG;QD;PO
     Route: 048
     Dates: start: 20110607, end: 20110610
  4. RISPERDAL [Suspect]
     Indication: PRODUCT USED FOR UNKNOWN INDICATION
     Dosage: 2 MG;QPM;PO;2 MG;QD;PO; 4 MG;QD;PO
     Route: 048
     Dates: start: 20110610, end: 20110629
  5. HAVLANE (LOPRAZOLAM MESILATE) [Suspect]
     Indication: PRODUCT USED FOR UNKNOWN INDICATION
     Dosage: ;PO
     Route: 048
     Dates: start: 20110602, end: 20110602
  6. SULFARLEM (ANETHOLE TRITHIONE) [Suspect]
     Indication: APTYALISM
     Dosage: 150 MG; QD; PO
     Route: 048
     Dates: start: 20110501
  7. LEPTICUR (TROPATEPINE HYDROCHLORIDE) [Suspect]
     Indication: PRODUCT USED FOR UNKNOWN INDICATION
     Dosage: 10 MG; BID; PO
     Route: 048
     Dates: start: 20110501, end: 20110601
  8. TRIMEPRAZINE TARTRATE [Suspect]
     Indication: PRODUCT USED FOR UNKNOWN INDICATION
     Dosage: 10 GTT;QD;PO
     Route: 048
     Dates: start: 20110501, end: 20110601
  9. RISPERDAL CONSTA [Suspect]
     Indication: PRODUCT USED FOR UNKNOWN INDICATION
     Dosage: 3.3333 MG;QD;IM
     Route: 030
     Dates: start: 20110615, end: 20110629

REACTIONS (3)
  - DEEP VEIN THROMBOSIS [None]
  - PULMONARY EMBOLISM [None]
  - TOXICITY TO VARIOUS AGENTS [None]
